FAERS Safety Report 5023765-7 (Version None)
Quarter: 2006Q2

REPORT INFORMATION
  Report Type: 
  Country: None (occurrence: None)
  Receive Date: 20060606
  Receipt Date: 20060523
  Transmission Date: 20061013
  Serious: Yes (Hospitalization)
  Sender: FDA-Public Use
  Company Number: US-2005-018048

PATIENT
  Age: 57 Year
  Sex: Female
  Weight: 51 kg

DRUGS (9)
  1. BETASERON [Suspect]
     Indication: RELAPSING-REMITTING MULTIPLE SCLEROSIS
     Dosage: 8 MIU, EVERY 2D, SUBCUTANEOUS
     Route: 058
     Dates: start: 20050323
  2. CORTICOSTEROIDS [Concomitant]
  3. BACLOFEN [Concomitant]
  4. MOTRIN [Concomitant]
  5. ZOCOR [Concomitant]
  6. TYLENOL (CAPLET) [Concomitant]
  7. ST. JOSEPH'S ASPIRIN (ACETYLSALICYLIC ACID) [Concomitant]
  8. CRESTOR [Concomitant]
  9. PLAVIX [Concomitant]

REACTIONS (5)
  - CONDITION AGGRAVATED [None]
  - FALL [None]
  - HEADACHE [None]
  - MULTIPLE SCLEROSIS [None]
  - URINARY TRACT INFECTION [None]
